FAERS Safety Report 5574755-7 (Version None)
Quarter: 2007Q4

REPORT INFORMATION
  Report Type: 
  Country: None (occurrence: None)
  Receive Date: 20071226
  Receipt Date: 20071226
  Transmission Date: 20080405
  Serious: Yes (Other)
  Sender: FDA-Public Use
  Company Number: None

PATIENT
  Age: 87 Year
  Sex: Female
  Weight: 63.5036 kg

DRUGS (1)
  1. POLYETHYLENE GLYCOL [Suspect]
     Indication: IRRITABLE BOWEL SYNDROME
     Dosage: 1 SCOOP DAILY

REACTIONS (4)
  - DIARRHOEA [None]
  - DYSGEUSIA [None]
  - MUSCLE SPASMS [None]
  - THERAPEUTIC RESPONSE UNEXPECTED WITH DRUG SUBSTITUTION [None]
